FAERS Safety Report 26218801 (Version 1)
Quarter: 2025Q4

REPORT INFORMATION
  Report Type: Report from Study
  Country: US (occurrence: US)
  Receive Date: 20251231
  Receipt Date: 20251231
  Transmission Date: 20260118
  Serious: Yes (Death, Life-Threatening, Disabling)
  Sender: JOHNSON AND JOHNSON
  Company Number: US-JNJFOC-20251237787

PATIENT
  Age: 70 Year
  Sex: Male
  Weight: 125.5 kg

DRUGS (3)
  1. CILTACABTAGENE AUTOLEUCEL [Suspect]
     Active Substance: CILTACABTAGENE AUTOLEUCEL
     Indication: Plasma cell myeloma
     Dosage: DOSE:  0.6
     Route: 042
     Dates: start: 20251111, end: 20251111
  2. DIPHENHYDRAMINE [Concomitant]
     Active Substance: DIPHENHYDRAMINE
     Indication: Premedication
     Dosage: 50
     Route: 042
     Dates: start: 20251111, end: 20251111
  3. CYCLOPHOSPHAMIDE\FLUDARABINE [Concomitant]
     Active Substance: CYCLOPHOSPHAMIDE\FLUDARABINE
     Indication: Product used for unknown indication

REACTIONS (1)
  - Septic shock [Fatal]
